FAERS Safety Report 5628354-9 (Version None)
Quarter: 2008Q1

REPORT INFORMATION
  Report Type: 
  Country: None (occurrence: None)
  Receive Date: 20080215
  Receipt Date: 20080206
  Transmission Date: 20080703
  Serious: Yes (Other)
  Sender: FDA-Public Use
  Company Number: IT-ABBOTT-08P-083-0437180-00

PATIENT
  Age: 1 Month
  Sex: Female

DRUGS (2)
  1. VALPROATE SODIUM [Suspect]
     Indication: GRAND MAL CONVULSION
     Dosage: NOT REPORTED
     Route: 065
  2. LAMOTRIGINE [Suspect]
     Indication: GRAND MAL CONVULSION
     Dosage: NOT REPORTED
     Route: 065

REACTIONS (2)
  - DRUG INEFFECTIVE [None]
  - MYOCLONIC EPILEPSY [None]
